FAERS Safety Report 4755850-9 (Version None)
Quarter: 2005Q3

REPORT INFORMATION
  Report Type: 
  Country: None (occurrence: None)
  Receive Date: 20050830
  Receipt Date: 20050520
  Transmission Date: 20060218
  Serious: No
  Sender: FDA-Public Use
  Company Number: US-BRISTOL-MYERS SQUIBB COMPANY-12978250

PATIENT

DRUGS (2)
  1. ERBITUX [Suspect]
  2. CAMPTOSAR [Concomitant]

REACTIONS (1)
  - DIARRHOEA [None]
